FAERS Safety Report 10891449 (Version 1)
Quarter: 2015Q1

REPORT INFORMATION
  Report Type: Spontaneous
  Country: GB (occurrence: GB)
  Receive Date: 20150306
  Receipt Date: 20150306
  Transmission Date: 20150721
  Serious: Yes (Life-Threatening)
  Sender: FDA-Public Use
  Company Number: GB-TEVA-544597ACC

PATIENT
  Age: 47 Year
  Sex: Male
  Weight: 80 kg

DRUGS (3)
  1. MORPHINE [Suspect]
     Active Substance: MORPHINE
     Indication: ANGINA PECTORIS
     Route: 042
     Dates: start: 20150218, end: 20150218
  2. ASPIRIN. [Concomitant]
     Active Substance: ASPIRIN
  3. GTN [Concomitant]
     Active Substance: NITROGLYCERIN

REACTIONS (7)
  - Pharyngeal oedema [Recovered/Resolved]
  - Speech disorder [Unknown]
  - Flushing [Recovered/Resolved]
  - Heart rate increased [Unknown]
  - Injection site erythema [Unknown]
  - Emotional distress [Unknown]
  - Tachycardia [Recovered/Resolved]

NARRATIVE: CASE EVENT DATE: 20150218
